FAERS Safety Report 7166633-7 (Version None)
Quarter: 2010Q4

REPORT INFORMATION
  Report Type: 
  Country: None (occurrence: None)
  Receive Date: 20101216
  Receipt Date: 20101212
  Transmission Date: 20110411
  Serious: Yes (Other)
  Sender: FDA-Public Use
  Company Number: US-PFIZER INC-2010171243

PATIENT

DRUGS (1)
  1. VIAGRA [Suspect]
     Dosage: UNK
     Dates: start: 19990101

REACTIONS (2)
  - CHRONIC MYELOID LEUKAEMIA [None]
  - DRUG EFFECT DECREASED [None]
